FAERS Safety Report 10612293 (Version 1)
Quarter: 2014Q4

REPORT INFORMATION
  Report Type: Spontaneous
  Country: US (occurrence: US)
  Receive Date: 20141127
  Receipt Date: 20141127
  Transmission Date: 20150529
  Serious: Yes (Hospitalization, Other)
  Sender: FDA-Public Use
  Company Number: US-ASTRAZENECA-2014SE89855

PATIENT
  Age: 48 Year
  Sex: Female
  Weight: 79.4 kg

DRUGS (4)
  1. TENORMIN [Suspect]
     Active Substance: ATENOLOL
     Indication: HYPERTENSION
     Route: 048
  2. TENORMIN [Suspect]
     Active Substance: ATENOLOL
     Indication: HYPERTENSION
     Route: 048
     Dates: start: 2011
  3. ANTIDEPRESSANTS [Concomitant]
     Active Substance: UNSPECIFIED INGREDIENT
  4. HORMONES [Concomitant]
     Active Substance: UNSPECIFIED INGREDIENT

REACTIONS (10)
  - Feeding disorder [Unknown]
  - Urine analysis abnormal [Unknown]
  - Intentional product use issue [Recovered/Resolved]
  - Drug dose omission [Unknown]
  - Overdose [Unknown]
  - Depression [Unknown]
  - Vomiting [Unknown]
  - Weight decreased [Not Recovered/Not Resolved]
  - Nail disorder [Not Recovered/Not Resolved]
  - Abdominal discomfort [Unknown]

NARRATIVE: CASE EVENT DATE: 2011
